FAERS Safety Report 18491667 (Version 6)
Quarter: 2021Q3

REPORT INFORMATION
  Report Type: Report from Study
  Country: US (occurrence: US)
  Receive Date: 20201111
  Receipt Date: 20210815
  Transmission Date: 20211014
  Serious: Yes (Hospitalization, Other)
  Sender: FDA-Public Use
  Company Number: NVSC2020US299876

PATIENT
  Sex: Female

DRUGS (2)
  1. ENTRESTO [Suspect]
     Active Substance: SACUBITRIL\VALSARTAN
     Indication: CARDIAC FAILURE
     Dosage: 1 DF, BID (49/51 MG)
     Route: 048
     Dates: start: 20200821
  2. IRON [Concomitant]
     Active Substance: IRON
     Indication: PRODUCT USED FOR UNKNOWN INDICATION
     Dosage: UNK
     Route: 041

REACTIONS (12)
  - Fall [Unknown]
  - Asthenia [Not Recovered/Not Resolved]
  - Fatigue [Not Recovered/Not Resolved]
  - Haemarthrosis [Unknown]
  - Joint injury [Unknown]
  - Dizziness [Unknown]
  - Nausea [Recovering/Resolving]
  - Foot fracture [Unknown]
  - Internal haemorrhage [Recovering/Resolving]
  - Blood pressure decreased [Unknown]
  - Hand fracture [Unknown]
  - Blood glucose increased [Unknown]
